FAERS Safety Report 12526509 (Version 2)
Quarter: 2016Q3

REPORT INFORMATION
  Report Type: Report from Study
  Country: BR (occurrence: BR)
  Receive Date: 20160705
  Receipt Date: 20160809
  Transmission Date: 20161109
  Serious: Yes (Other)
  Sender: FDA-Public Use
  Company Number: PHHY2016BR090696

PATIENT
  Sex: Male
  Weight: 83.5 kg

DRUGS (6)
  1. EXJADE [Suspect]
     Active Substance: DEFERASIROX
     Indication: SICKLE CELL ANAEMIA
     Dosage: 1000 MG (2 DF OF 500 MG, 10 MG/KG) QD
     Route: 048
     Dates: start: 201503
  2. HEMAX//ERYTHROPOIETIN [Concomitant]
     Indication: SPHEROCYTIC ANAEMIA
     Dosage: 1 DF, TIW
     Route: 065
     Dates: start: 201603
  3. FOLIC ACID. [Concomitant]
     Active Substance: FOLIC ACID
     Indication: SPHEROCYTIC ANAEMIA
     Dosage: 1 DF, QD
     Route: 048
     Dates: start: 1997
  4. RENAGEL [Concomitant]
     Active Substance: SEVELAMER HYDROCHLORIDE
     Indication: PRODUCT USED FOR UNKNOWN INDICATION
     Dosage: 5 DF, QD
     Route: 048
     Dates: start: 201503
  5. CARVEDILOL. [Concomitant]
     Active Substance: CARVEDILOL
     Indication: ENDOCARDITIS
     Dosage: 2 DF, QD
     Route: 048
     Dates: start: 201502
  6. FUROSEMIDE. [Concomitant]
     Active Substance: FUROSEMIDE
     Indication: MICTURITION DISORDER
     Dosage: 4 DF, QD
     Route: 048
     Dates: start: 201503

REACTIONS (10)
  - Swelling face [Recovered/Resolved]
  - Haemoglobin decreased [Recovered/Resolved]
  - Mass [Recovered/Resolved]
  - Blood phosphorus decreased [Recovered/Resolved]
  - Feeling abnormal [Recovered/Resolved]
  - Decreased immune responsiveness [Recovered/Resolved]
  - Agitation [Unknown]
  - Fluid retention [Unknown]
  - Influenza [Recovered/Resolved]
  - Pruritus generalised [Recovered/Resolved]
